FAERS Safety Report 23974237 (Version 2)
Quarter: 2024Q2

REPORT INFORMATION
  Report Type: Report from Study
  Country: GB (occurrence: GB)
  Receive Date: 20240614
  Receipt Date: 20240618
  Transmission Date: 20240716
  Serious: Yes (Hospitalization)
  Sender: FDA-Public Use
  Company Number: GB-ABBVIE-5798356

PATIENT
  Sex: Male

DRUGS (3)
  1. CARBIDOPA\LEVODOPA [Suspect]
     Active Substance: CARBIDOPA\LEVODOPA
     Indication: Parkinson^s disease
     Dosage: 20MG/5MG, MD 14.2 CR 5.6 ED 2.5
     Route: 050
  2. CARBIDOPA\LEVODOPA [Suspect]
     Active Substance: CARBIDOPA\LEVODOPA
  3. REGITINE [Concomitant]
     Active Substance: PHENTOLAMINE MESYLATE
     Indication: Product used for unknown indication
     Route: 065

REACTIONS (11)
  - Spinal fracture [Unknown]
  - Device breakage [Unknown]
  - Spinal compression fracture [Unknown]
  - Device kink [Unknown]
  - Incorrect route of product administration [Unknown]
  - Dysarthria [Unknown]
  - Device physical property issue [Unknown]
  - Device issue [Unknown]
  - Dysphagia [Unknown]
  - Lower respiratory tract infection [Unknown]
  - Thoracic vertebral fracture [Not Recovered/Not Resolved]
